FAERS Safety Report 25295762 (Version 1)
Quarter: 2025Q2

REPORT INFORMATION
  Report Type: Spontaneous
  Country: US (occurrence: US)
  Receive Date: 20250511
  Receipt Date: 20250511
  Transmission Date: 20250717
  Serious: No
  Sender: SANOFI AVENTIS
  Company Number: US-SA-2025SA133220

PATIENT
  Age: 57 Year
  Sex: Female

DRUGS (3)
  1. DUPIXENT [Suspect]
     Active Substance: DUPILUMAB
     Indication: Asthma
     Route: 058
     Dates: start: 202406, end: 202406
  2. DUPIXENT [Suspect]
     Active Substance: DUPILUMAB
     Dosage: 300 MG, QOW
     Route: 058
     Dates: start: 2024
  3. EUFLEXXA [Concomitant]
     Active Substance: HYALURONATE SODIUM

REACTIONS (9)
  - Urinary tract infection [Unknown]
  - Condition aggravated [Unknown]
  - Bladder spasm [Unknown]
  - Secretion discharge [Unknown]
  - Influenza [Unknown]
  - Upper respiratory tract infection [Unknown]
  - Pyrexia [Recovered/Resolved]
  - Osteoarthritis [Unknown]
  - Arthralgia [Unknown]

NARRATIVE: CASE EVENT DATE: 20240601
